FAERS Safety Report 19116467 (Version 1)
Quarter: 2021Q2

REPORT INFORMATION
  Report Type: Report from Study
  Country: KR (occurrence: KR)
  Receive Date: 20210409
  Receipt Date: 20210409
  Transmission Date: 20210717
  Serious: Yes (Life-Threatening, Hospitalization)
  Sender: FDA-Public Use
  Company Number: KR-GILEAD-2019-0397644

PATIENT
  Sex: Male
  Weight: 48.6 kg

DRUGS (17)
  1. VIREAD [Suspect]
     Active Substance: TENOFOVIR DISOPROXIL FUMARATE
     Indication: CHRONIC HEPATITIS B
     Dosage: UNK
     Route: 065
     Dates: start: 20190124, end: 20190128
  2. MYDRIN?P [Concomitant]
     Active Substance: PHENYLEPHRINE HYDROCHLORIDE\TROPICAMIDE
     Indication: CYTOMEGALOVIRUS CHORIORETINITIS
     Dosage: UNK
     Dates: start: 20190121, end: 20190121
  3. RILPIVIRINE [Concomitant]
     Active Substance: RILPIVIRINE
     Indication: HIV INFECTION
     Dosage: UNK
     Dates: start: 20190123
  4. EMTRICITABINE/TENOFOVIR ALAFENAMIDE [Suspect]
     Active Substance: EMTRICITABINE\TENOFOVIR
     Indication: HIV INFECTION
     Dosage: 1 DOSAGE FORM, QD
     Route: 048
     Dates: start: 20190123
  5. TACENOL [Concomitant]
     Indication: PYREXIA
     Dosage: UNK
     Dates: start: 20190123, end: 20190123
  6. PACETA [Concomitant]
     Indication: PYREXIA
     Dosage: UNK
     Dates: start: 20190122, end: 20190122
  7. PACETA [Concomitant]
     Dosage: UNK
     Dates: start: 20190123, end: 20190123
  8. CEFTRIAXONE. [Concomitant]
     Active Substance: CEFTRIAXONE
     Indication: PNEUMOCYSTIS JIROVECII PNEUMONIA
     Dosage: UNK
     Dates: start: 20190123, end: 20190204
  9. POLYBUTINE [Concomitant]
     Indication: NAUSEA
     Dosage: UNK
     Dates: start: 20190125, end: 20190128
  10. CLARI [Concomitant]
     Indication: PNEUMOCYSTIS JIROVECII PNEUMONIA
     Dosage: UNK
     Dates: start: 20190128, end: 20190204
  11. COTRIM [Concomitant]
     Active Substance: SULFAMETHOXAZOLE\TRIMETHOPRIM
     Indication: PNEUMOCYSTIS JIROVECII PNEUMONIA
     Dosage: UNK
     Dates: start: 20190124, end: 20190213
  12. TAMBUTOL [Concomitant]
     Indication: PROPHYLAXIS
  13. MECKOOL [Concomitant]
     Dosage: UNK
     Dates: start: 20190123, end: 20190125
  14. MECKOOL [Concomitant]
     Indication: NAUSEA
     Dosage: UNK
     Dates: start: 20190122, end: 20190122
  15. PACETA [Concomitant]
     Dosage: UNK
     Dates: start: 20190124, end: 20190124
  16. DIFLUCAN [Concomitant]
     Active Substance: FLUCONAZOLE
     Indication: PNEUMOCYSTIS JIROVECII PNEUMONIA
     Dosage: UNK
     Dates: start: 20190124, end: 20190128
  17. LACIDOFIL [LACTOBACILLUS ACIDOPHILUS;LACTOBACILLUS RHAMNOSUS] [Concomitant]
     Indication: DIARRHOEA
     Dosage: UNK
     Dates: start: 20190125, end: 20190128

REACTIONS (2)
  - Seizure [Not Recovered/Not Resolved]
  - Off label use [Recovered/Resolved]

NARRATIVE: CASE EVENT DATE: 20190124
